FAERS Safety Report 7797006-1 (Version None)
Quarter: 2011Q4

REPORT INFORMATION
  Report Type: 
  Country: None (occurrence: None)
  Receive Date: 20111003
  Receipt Date: 20110921
  Transmission Date: 20120403
  Serious: Yes (Other)
  Sender: FDA-Public Use
  Company Number: GB-ACCORD-010734

PATIENT
  Age: 55 Year
  Sex: Male

DRUGS (1)
  1. SIMVASTATIN [Suspect]
     Indication: PRODUCT USED FOR UNKNOWN INDICATION
     Dosage: 40.00-MG

REACTIONS (5)
  - CONFUSIONAL STATE [None]
  - PERIARTHRITIS [None]
  - CARPAL TUNNEL SYNDROME [None]
  - NERVE COMPRESSION [None]
  - MYALGIA [None]
